FAERS Safety Report 8539601-8 (Version None)
Quarter: 2012Q3

REPORT INFORMATION
  Report Type: 
  Country: None (occurrence: None)
  Receive Date: 20120726
  Receipt Date: 20120719
  Transmission Date: 20120928
  Serious: Yes (Other)
  Sender: FDA-Public Use
  Company Number: US-JNJFOC-20120314730

PATIENT
  Sex: Male
  Weight: 108.86 kg

DRUGS (12)
  1. FENTANYL TRASNSDERMAL SYSTEM [Suspect]
     Indication: PAIN
     Route: 062
     Dates: start: 20080101, end: 20090101
  2. MORPHINE SULFATE [Suspect]
     Indication: PAIN
     Route: 048
     Dates: start: 20050101
  3. OXCARBAZEPINE [Concomitant]
     Indication: CONVULSION
     Route: 048
  4. DURAGESIC-100 [Suspect]
     Route: 062
     Dates: start: 20090101, end: 20090101
  5. DURAGESIC-100 [Suspect]
     Route: 062
  6. VIMPAT [Suspect]
     Indication: CONVULSION
     Route: 048
     Dates: start: 20110101
  7. DURAGESIC-100 [Suspect]
     Route: 062
     Dates: start: 20090101, end: 20100101
  8. MORPHINE SULFATE [Suspect]
     Route: 048
     Dates: start: 20050101
  9. DURAGESIC-100 [Suspect]
     Route: 062
     Dates: start: 20070101, end: 20080101
  10. DURAGESIC-100 [Suspect]
     Indication: PAIN
     Route: 062
  11. DURAGESIC-100 [Suspect]
     Route: 062
  12. DURAGESIC-100 [Suspect]
     Route: 062
     Dates: start: 20100101

REACTIONS (8)
  - WRONG TECHNIQUE IN DRUG USAGE PROCESS [None]
  - DRUG INEFFECTIVE [None]
  - CONTUSION [None]
  - APPLICATION SITE EROSION [None]
  - APPLICATION SITE REACTION [None]
  - CONVULSION [None]
  - PRODUCT QUALITY ISSUE [None]
  - PAIN [None]
